FAERS Safety Report 23242298 (Version 4)
Quarter: 2023Q4

REPORT INFORMATION
  Report Type: Report from Study
  Country: NL (occurrence: NL)
  Receive Date: 20231129
  Receipt Date: 20231223
  Transmission Date: 20240110
  Serious: Yes (Death, Other)
  Sender: FDA-Public Use
  Company Number: NL-ABBVIE-4732551

PATIENT
  Sex: Female

DRUGS (16)
  1. CARBIDOPA\LEVODOPA [Suspect]
     Active Substance: CARBIDOPA\LEVODOPA
     Indication: Parkinson^s disease
     Dosage: MD: 6.7 ML, CD: 6.2 ML/H, ED: 2.0 ML, CND: 3.4 ML/H, END: 1.5 ML
     Route: 050
  2. CARBIDOPA\LEVODOPA [Suspect]
     Active Substance: CARBIDOPA\LEVODOPA
     Dosage: MD: 8.0 ML, CD: 5.9 ML/H, ED: 4.0 ML, CND: 3.4 ML/H, END: 3.0 ML, REMAINS AT 24 HOURS
     Route: 050
  3. CARBIDOPA\LEVODOPA [Suspect]
     Active Substance: CARBIDOPA\LEVODOPA
     Dosage: MD: 8.0 ML, CD: 5.9 ML/H, ED: 4.0 ML, CND: 3.4 ML/H, END: 3.0 ML
     Route: 050
     Dates: start: 20200530
  4. CARBIDOPA\LEVODOPA [Suspect]
     Active Substance: CARBIDOPA\LEVODOPA
     Dosage: MD: 7.7 ML, CD: 6.1 ML/H, ED: 2.0 ML, CND: 3.4 ML/H, END: 1.5 ML, REMAINS AT 24 HOURS
     Route: 050
  5. CARBIDOPA\LEVODOPA [Suspect]
     Active Substance: CARBIDOPA\LEVODOPA
     Dosage: REMAINS AT 24 HOURS
     Route: 050
     Dates: end: 202311
  6. CARBIDOPA\LEVODOPA [Suspect]
     Active Substance: CARBIDOPA\LEVODOPA
     Dosage: MD: 8.0 ML, CD: 6.1 ML/H, ED: 4.0 ML, CND: 3.4 ML/H, END: 3.0 ML, REMAINS AT 24 HOURS
     Route: 050
  7. CARBIDOPA\LEVODOPA [Suspect]
     Active Substance: CARBIDOPA\LEVODOPA
     Dosage: MD: 8.0 ML, CD: 5.9 ML/H, ED: 4.0 ML, CND: 3.4 ML/H, END: 3.0 ML REMAINS AT 16 HOURS
     Route: 050
  8. MOVICOLON [Concomitant]
     Active Substance: POLYETHYLENE GLYCOL 3350\POTASSIUM CHLORIDE\SODIUM BICARBONATE\SODIUM CHLORIDE
     Indication: Bowel movement irregularity
     Route: 065
  9. CLONAZEPAM [Concomitant]
     Active Substance: CLONAZEPAM
     Indication: Product used for unknown indication
     Route: 065
  10. ENTACAPONE [Concomitant]
     Active Substance: ENTACAPONE
     Indication: Product used for unknown indication
     Route: 065
  11. CLOZAPINE [Concomitant]
     Active Substance: CLOZAPINE
     Indication: Hallucination
     Route: 065
  12. PRAMIPEXOLE [Concomitant]
     Active Substance: PRAMIPEXOLE
     Indication: Product used for unknown indication
     Route: 065
  13. SINEMET [Concomitant]
     Active Substance: CARBIDOPA\LEVODOPA
     Indication: Product used for unknown indication
  14. GABAPENTIN [Concomitant]
     Active Substance: GABAPENTIN
     Indication: Polyneuropathy
     Dosage: TIME INTERVAL: 0.33333333 DAYS
     Route: 048
     Dates: start: 20221216
  15. PANTOPRAZOLE [Concomitant]
     Active Substance: PANTOPRAZOLE
     Indication: Gastric pH increased
     Dosage: 1 AT 8 AM
     Route: 048
     Dates: start: 20201209
  16. 3M CAVILON ANTIFUNGAL [Concomitant]
     Active Substance: MICONAZOLE NITRATE
     Indication: Skin irritation
     Dosage: ONCE EVERY 3 DAYS ON IRRITATED SKIN
     Route: 003
     Dates: start: 20201209

REACTIONS (19)
  - Death [Fatal]
  - Extra dose administered [Recovering/Resolving]
  - Polyneuropathy [Not Recovered/Not Resolved]
  - Tension [Not Recovered/Not Resolved]
  - Dyskinesia [Not Recovered/Not Resolved]
  - Memory impairment [Not Recovered/Not Resolved]
  - Emotional disorder [Not Recovered/Not Resolved]
  - Loss of personal independence in daily activities [Not Recovered/Not Resolved]
  - Muscle rigidity [Not Recovered/Not Resolved]
  - Terminal state [Not Recovered/Not Resolved]
  - Inflammation [Not Recovered/Not Resolved]
  - Unevaluable event [Not Recovered/Not Resolved]
  - Feeding disorder [Recovering/Resolving]
  - Loss of personal independence in daily activities [Not Recovered/Not Resolved]
  - Depressed mood [Not Recovered/Not Resolved]
  - On and off phenomenon [Unknown]
  - Pain in extremity [Not Recovered/Not Resolved]
  - Stress [Not Recovered/Not Resolved]
  - Insomnia [Unknown]

NARRATIVE: CASE EVENT DATE: 20231124
